FAERS Safety Report 21966030 (Version 1)
Quarter: 2023Q1

REPORT INFORMATION
  Report Type: Spontaneous
  Country: US (occurrence: US)
  Receive Date: 20230208
  Receipt Date: 20230208
  Transmission Date: 20230418
  Serious: Yes (Hospitalization, Other)
  Sender: FDA-Public Use
  Company Number: US-ALVOGEN-2022-ALVOGEN-120595

PATIENT
  Age: 81 Year
  Sex: Female

DRUGS (1)
  1. NAPROXEN [Suspect]
     Active Substance: NAPROXEN
     Indication: Back pain

REACTIONS (1)
  - Erythema multiforme [Recovered/Resolved]
